FAERS Safety Report 19938245 (Version 2)
Quarter: 2021Q4

REPORT INFORMATION
  Report Type: Spontaneous
  Country: JP (occurrence: JP)
  Receive Date: 20211011
  Receipt Date: 20211021
  Transmission Date: 20220303
  Serious: Yes (Death)
  Sender: FDA-Public Use
  Company Number: JP-NOVOPROD-853749

PATIENT
  Age: 7 Decade
  Sex: Male
  Weight: 60 kg

DRUGS (1)
  1. NOVOSEVEN [Suspect]
     Active Substance: COAGULATION FACTOR VIIA RECOMBINANT HUMAN
     Indication: Acquired haemophilia
     Dosage: 40 MG(NOVOSEVEN WAS ADMINISTERED AT 5MG EVERY THREE HOURS UNTIL 3:00 A.M ON 2021-09-30)
     Route: 042
     Dates: start: 20210928, end: 20210930

REACTIONS (1)
  - Gastrointestinal haemorrhage [Fatal]

NARRATIVE: CASE EVENT DATE: 20210928
